FAERS Safety Report 9299369 (Version 2)
Quarter: 2013Q4

REPORT INFORMATION
  Report Type: Spontaneous
  Country: US (occurrence: US)
  Receive Date: 20130520
  Receipt Date: 20131106
  Transmission Date: 20140711
  Serious: Yes (Hospitalization)
  Sender: FDA-Public Use
  Company Number: US-B.I. PHARMACEUTICALS,INC./RIDGEFIELD-2013-BI-13760BP

PATIENT
  Age: 82 Year
  Sex: Female
  Weight: 83.91 kg

DRUGS (15)
  1. PRADAXA [Suspect]
     Indication: ANTICOAGULANT THERAPY
     Dates: start: 20111111, end: 20120611
  2. PRADAXA [Suspect]
     Indication: ATRIAL FIBRILLATION
  3. VESICARE [Concomitant]
  4. HYDROCHLOROTHIAZIDE [Concomitant]
     Dates: start: 2009
  5. FUROSEMIDE [Concomitant]
     Dates: start: 2009
  6. LISINOPRIL [Concomitant]
     Dates: start: 2009
  7. VITAMIN D [Concomitant]
  8. PRODIKA [Concomitant]
  9. METOPROLOL [Concomitant]
     Dates: start: 2009
  10. FOLIC ACID [Concomitant]
     Dates: start: 2009
  11. KLOR-CON [Concomitant]
     Dates: start: 2009
  12. ZETIA [Concomitant]
     Dates: start: 2009
  13. LEVOTHYROXINE [Concomitant]
     Dates: start: 2009
  14. SIMVASTATIN [Concomitant]
     Dates: start: 2009
  15. BABY ASPIRIN [Concomitant]
     Dates: start: 2009, end: 201206

REACTIONS (3)
  - Gastrointestinal haemorrhage [Recovered/Resolved]
  - Anaemia [Unknown]
  - Fall [Unknown]
